FAERS Safety Report 11877652 (Version 1)
Quarter: 2015Q4

REPORT INFORMATION
  Report Type: Spontaneous
  Country: GB (occurrence: GB)
  Receive Date: 20151230
  Receipt Date: 20151230
  Transmission Date: 20160305
  Serious: Yes (Hospitalization)
  Sender: FDA-Public Use
  Company Number: GB-ROCHE-1684935

PATIENT
  Age: 45 Year
  Sex: Male

DRUGS (5)
  1. PEG-INTERFERON ALFA 2A [Suspect]
     Active Substance: PEGINTERFERON ALFA-2A
     Indication: HEPATITIS C VIRUS TEST POSITIVE
     Route: 065
  2. RIBAVIRIN. [Concomitant]
     Active Substance: RIBAVIRIN
     Indication: HEPATITIS C VIRUS TEST POSITIVE
     Route: 065
  3. AMITRIPTYLINE [Concomitant]
     Active Substance: AMITRIPTYLINE
     Route: 065
  4. TELAPREVIR [Suspect]
     Active Substance: TELAPREVIR
     Indication: HEPATITIS C VIRUS TEST POSITIVE
     Route: 065
  5. AMITRIPTYLINE [Concomitant]
     Active Substance: AMITRIPTYLINE
     Route: 065

REACTIONS (9)
  - Insomnia [Unknown]
  - Depressed mood [Unknown]
  - Fatigue [Unknown]
  - Apathy [Unknown]
  - Suicidal ideation [Unknown]
  - Violence-related symptom [Unknown]
  - Anhedonia [Unknown]
  - Homicidal ideation [Unknown]
  - Decreased appetite [Unknown]
